FAERS Safety Report 5299916-6 (Version None)
Quarter: 2007Q3

REPORT INFORMATION
  Report Type: 
  Country: None (occurrence: None)
  Receive Date: 20070410
  Receipt Date: 20070327
  Transmission Date: 20080115
  Serious: Yes (Other)
  Sender: FDA-Public Use
  Company Number: B0460476A

PATIENT
  Age: 7 Year
  Sex: Female
  Weight: 23.9499 kg

DRUGS (6)
  1. RELENZA [Suspect]
     Indication: INFLUENZA
     Dosage: 10 MG TWICE PER DAY INHALED
     Route: 055
     Dates: start: 20070227, end: 20070227
  2. CLEMASTINE FUMARATE [Concomitant]
  3. MURAMIDASE [Concomitant]
  4. PROCATEROL HCL [Concomitant]
  5. KETOTIFEN FUMARATE [Concomitant]
  6. CEFROXADINE [Concomitant]

REACTIONS (2)
  - DELIRIUM [None]
  - FEAR [None]
